FAERS Safety Report 24444524 (Version 2)
Quarter: 2024Q4

REPORT INFORMATION
  Report Type: Report from Study
  Country: US (occurrence: US)
  Receive Date: 20241016
  Receipt Date: 20241017
  Transmission Date: 20250114
  Serious: No
  Sender: ROCHE
  Company Number: US-ROCHE-2742647

PATIENT
  Age: 61 Year
  Sex: Female

DRUGS (18)
  1. RITUXAN [Suspect]
     Active Substance: RITUXIMAB
     Indication: Dermatomyositis
     Dosage: EVERY 4 MONTHS?DATE OF TREATMENT: 01/MAR/2018, 15/MAR/2018, 05/JUL/2018, 19/JUL/2018,
     Route: 042
  2. CYMBALTA [Concomitant]
     Active Substance: DULOXETINE HYDROCHLORIDE
  3. TYROSINE [Concomitant]
     Active Substance: TYROSINE
  4. TRAMADOL [Concomitant]
     Active Substance: TRAMADOL
  5. MIMVEY [Concomitant]
     Active Substance: ESTRADIOL\NORETHINDRONE ACETATE
  6. SULFAMETHOXAZOLE [Concomitant]
     Active Substance: SULFAMETHOXAZOLE
  7. MEDROL [Concomitant]
     Active Substance: METHYLPREDNISOLONE
  8. FLUOCINONIDE [Concomitant]
     Active Substance: FLUOCINONIDE
  9. DESONIDE [Concomitant]
     Active Substance: DESONIDE
  10. CYCLOBENZAPRINE [Concomitant]
     Active Substance: CYCLOBENZAPRINE
  11. ASPIRIN [Concomitant]
     Active Substance: ASPIRIN
  12. TIROSINT [Concomitant]
     Active Substance: LEVOTHYROXINE SODIUM
  13. AMBIEN [Concomitant]
     Active Substance: ZOLPIDEM TARTRATE
  14. FLUOCINONIDE [Concomitant]
     Active Substance: FLUOCINONIDE
  15. LISINOPRIL [Concomitant]
     Active Substance: LISINOPRIL
  16. VITAMIN D2 [Concomitant]
     Active Substance: ERGOCALCIFEROL
  17. SPRYCEL [Concomitant]
     Active Substance: DASATINIB
  18. DULOXETINE [Concomitant]
     Active Substance: DULOXETINE

REACTIONS (2)
  - Off label use [Unknown]
  - No adverse event [Unknown]
